FAERS Safety Report 20637111 (Version 4)
Quarter: 2024Q2

REPORT INFORMATION
  Report Type: Other
  Country: CA (occurrence: None)
  Receive Date: 20220325
  Receipt Date: 20240524
  Transmission Date: 20240715
  Serious: Yes (Hospitalization, Other)
  Sender: FDA-Public Use
  Company Number: CA-ROCHE-3046276

PATIENT
  Age: 28 Year
  Sex: Male

DRUGS (1)
  1. OCREVUS [Suspect]
     Active Substance: OCRELIZUMAB
     Indication: Relapsing-remitting multiple sclerosis
     Dosage: 300 MG AT DAY 0 AND 14, THEN 600 MG EVERY 6 MONTH
     Route: 042
     Dates: start: 20210310

REACTIONS (3)
  - Rhabdomyolysis [Recovered/Resolved]
  - Rhabdomyolysis [Recovered/Resolved]
  - Sensory loss [Recovered/Resolved]

NARRATIVE: CASE EVENT DATE: 20220223
